FAERS Safety Report 8102355-3 (Version None)
Quarter: 2012Q1

REPORT INFORMATION
  Report Type: 
  Country: None (occurrence: None)
  Receive Date: 20120201
  Receipt Date: 20120127
  Transmission Date: 20120608
  Serious: No
  Sender: FDA-Public Use
  Company Number: US-PFIZER INC-2012023408

PATIENT
  Age: 63 Year
  Sex: Female
  Weight: 63.5 kg

DRUGS (6)
  1. SYNTHROID [Concomitant]
     Dosage: 75 UG, DAILY
  2. QUINAPRIL [Concomitant]
     Indication: BLOOD PRESSURE ABNORMAL
     Dosage: 5 MG, UNK
  3. CYTOMEL [Concomitant]
     Dosage: 5 UG, 2X/DAY
  4. PLAQUENIL [Concomitant]
     Dosage: 200 MG, DAILY
  5. IBUPROFEN (ADVIL) [Suspect]
     Indication: ARTHRITIS
     Dosage: UNK, AS NEEDED
     Route: 048
  6. QVAR 40 [Concomitant]
     Indication: ASTHMA
     Dosage: UNK
     Route: 055

REACTIONS (2)
  - BLOOD CALCIUM INCREASED [None]
  - ABDOMINAL PAIN LOWER [None]
